FAERS Safety Report 23346226 (Version 5)
Quarter: 2024Q1

REPORT INFORMATION
  Report Type: Report from Study
  Country: AR (occurrence: AR)
  Receive Date: 20231228
  Receipt Date: 20240226
  Transmission Date: 20240410
  Serious: Yes (Other)
  Sender: FDA-Public Use
  Company Number: AR-002147023-NVSC2023AR272622

PATIENT
  Age: 74 Year
  Sex: Female

DRUGS (3)
  1. KISQALI [Suspect]
     Active Substance: RIBOCICLIB
     Indication: Breast cancer metastatic
     Dosage: 400 MG, TID
     Route: 048
     Dates: start: 20230816
  2. METFORMIN [Concomitant]
     Active Substance: METFORMIN HYDROCHLORIDE
     Indication: Product used for unknown indication
     Dosage: UNK
     Route: 065
  3. ROSUVASTATIN [Concomitant]
     Active Substance: ROSUVASTATIN
     Indication: Product used for unknown indication
     Dosage: UNK
     Route: 065

REACTIONS (19)
  - Speech disorder [Recovering/Resolving]
  - Pigmentation disorder [Not Recovered/Not Resolved]
  - Pruritus [Not Recovered/Not Resolved]
  - Hypothyroidism [Unknown]
  - Upper airway obstruction [Unknown]
  - Haematoma [Unknown]
  - Skin injury [Not Recovered/Not Resolved]
  - Skin hyperpigmentation [Unknown]
  - Capillary fragility [Unknown]
  - Skin atrophy [Not Recovered/Not Resolved]
  - Skin abrasion [Unknown]
  - Pain of skin [Unknown]
  - Dysphonia [Unknown]
  - Skin lesion [Unknown]
  - Urticaria [Unknown]
  - Arthropod bite [Unknown]
  - Hypersensitivity [Unknown]
  - Productive cough [Unknown]
  - Rash [Unknown]

NARRATIVE: CASE EVENT DATE: 20230901
